FAERS Safety Report 5918133-7 (Version None)
Quarter: 2008Q4

REPORT INFORMATION
  Report Type: 
  Country: None (occurrence: None)
  Receive Date: 20081014
  Receipt Date: 20080919
  Transmission Date: 20090506
  Serious: No
  Sender: FDA-Public Use
  Company Number: US-B.I. PHARMACEUTICALS,INC./RIDGEFIELD-2006-BP-11094BP

PATIENT
  Sex: Male
  Weight: 70 kg

DRUGS (2)
  1. MIRAPEX [Suspect]
     Indication: PARKINSON'S DISEASE
  2. REQUIP [Concomitant]
     Indication: PARKINSON'S DISEASE

REACTIONS (3)
  - HYPERPHAGIA [None]
  - PATHOLOGICAL GAMBLING [None]
  - SOMNOLENCE [None]
